FAERS Safety Report 4849452-3 (Version None)
Quarter: 2005Q4

REPORT INFORMATION
  Report Type: 
  Country: None (occurrence: None)
  Receive Date: 20051209
  Receipt Date: 20051205
  Transmission Date: 20060501
  Serious: Yes (Other)
  Sender: FDA-Public Use
  Company Number: US-AMGEN-STX160302

PATIENT
  Sex: Female

DRUGS (6)
  1. ENBREL [Suspect]
     Indication: PSORIASIS
     Dates: start: 20051002
  2. SORIATANE [Concomitant]
     Dates: start: 20050601, end: 20050901
  3. SORIATANE [Concomitant]
     Dates: start: 20050901, end: 20051001
  4. SORIATANE [Concomitant]
     Dates: start: 20051001
  5. ATENOLOL [Concomitant]
     Dates: start: 20020101
  6. COLCHICINE [Concomitant]
     Dates: start: 20020101

REACTIONS (6)
  - AUTOIMMUNE HEPATITIS [None]
  - CONDITION AGGRAVATED [None]
  - HAEMATOCRIT DECREASED [None]
  - HAEMOGLOBIN DECREASED [None]
  - HEPATIC CIRRHOSIS [None]
  - PLATELET COUNT DECREASED [None]
